FAERS Safety Report 15673347 (Version 3)
Quarter: 2019Q2

REPORT INFORMATION
  Report Type: Spontaneous
  Country: GB (occurrence: GB)
  Receive Date: 20181129
  Receipt Date: 20190608
  Transmission Date: 20190711
  Serious: Yes (Hospitalization, Other)
  Sender: FDA-Public Use
  Company Number: PHHY2018GB168299

PATIENT
  Age: 6 Year
  Sex: Male
  Weight: 30.15 kg

DRUGS (4)
  1. ATENOLOL. [Concomitant]
     Active Substance: ATENOLOL
     Indication: EPILEPSY
     Dosage: 20 MG, BID
     Route: 048
     Dates: start: 20140522
  2. VITAMIN D3 [Concomitant]
     Active Substance: CHOLECALCIFEROL
     Indication: EPILEPSY
     Dosage: 25000 IU,EVERY SIX WEEKS
     Route: 048
     Dates: start: 20171212
  3. ZONISAMIDE. [Concomitant]
     Active Substance: ZONISAMIDE
     Indication: EPILEPSY
     Dosage: UNK
     Route: 048
     Dates: start: 2015
  4. EVEROLIMUS. [Suspect]
     Active Substance: EVEROLIMUS
     Indication: EPILEPSY
     Dosage: 6 MG, QD
     Route: 048
     Dates: start: 20180212, end: 20190422

REACTIONS (7)
  - Generalised tonic-clonic seizure [Recovered/Resolved]
  - Body temperature increased [Unknown]
  - Atelectasis [Unknown]
  - Vomiting [Recovered/Resolved]
  - Aspiration [Recovered/Resolved]
  - Metapneumovirus infection [Unknown]
  - Mouth ulceration [Unknown]

NARRATIVE: CASE EVENT DATE: 20181122
